FAERS Safety Report 8990953 (Version 1)
Quarter: 2012Q4

REPORT INFORMATION
  Report Type: Spontaneous
  Country: CN (occurrence: None)
  Receive Date: 20121220
  Receipt Date: 20121220
  Transmission Date: 20130627
  Serious: Yes (Hospitalization)
  Sender: FDA-Public Use
  Company Number: DSA_61490_2012

PATIENT
  Sex: Female

DRUGS (17)
  1. 5-FU [Suspect]
     Indication: COLON CANCER METASTATIC
     Dosage: every cycle
     Route: 040
     Dates: start: 20120927, end: 20120927
  2. 5-FU [Suspect]
     Indication: COLON CANCER METASTATIC
     Dosage: every cycle
     Route: 040
     Dates: start: 20120927, end: 20120929
  3. BLINDED THERAPY [Suspect]
     Indication: COLON CANCER METASTATIC
     Dosage: every cycle
     Route: 042
     Dates: start: 20120927, end: 20120927
  4. IRINOTECAN (IRINOTECAN) [Suspect]
     Indication: COLON CANCER METASTATIC
     Dosage: every cycle
     Route: 042
     Dates: start: 20120927, end: 20120927
  5. LEUCOVORIN [Suspect]
     Indication: COLON CANCER METASTATIC
     Dosage: every cycle
     Route: 042
     Dates: start: 20120927, end: 20120927
  6. GRANISETRON [Concomitant]
  7. DEXAMETHASONE [Concomitant]
  8. GLUTATHIONE [Concomitant]
  9. LANSOPRAZOLE [Concomitant]
  10. INVERT SUGAR [Concomitant]
  11. ASPARTATE POTASSIUM W/ MAGNESIUM ASPARTATE [Concomitant]
  12. VITAMIN NOS [Concomitant]
  13. ATROPINE [Concomitant]
  14. MEDOXYPROGESTERONE [Concomitant]
  15. OXALIPLATIN [Concomitant]
  16. XELODA [Concomitant]
  17. ALL OTHER THERAPEUTIC PRODUCTS (ALL OTHER THERAPEUTIC PRODUCTS) [Concomitant]

REACTIONS (3)
  - Neutropenia [None]
  - White blood cell count decreased [None]
  - Peritonitis [None]
